FAERS Safety Report 8276237-0 (Version None)
Quarter: 2012Q2

REPORT INFORMATION
  Report Type: 
  Country: None (occurrence: None)
  Receive Date: 20120412
  Receipt Date: 20120411
  Transmission Date: 20120825
  Serious: Yes (Hospitalization)
  Sender: FDA-Public Use
  Company Number: JP-JNJFOC-20120400132

PATIENT
  Age: 63 Year
  Sex: Male

DRUGS (6)
  1. MILTAX [Concomitant]
     Route: 062
  2. VOLTAREN [Concomitant]
     Indication: PAIN
     Route: 054
  3. LOXONIN [Suspect]
     Indication: PAIN
     Route: 065
  4. TRAMADOL HYDROCHLORIDE AND ACETAMINOPHEN [Suspect]
     Indication: PAIN
     Dosage: 1 PER DAY
     Route: 048
     Dates: start: 20120302, end: 20120309
  5. UNKNOWN MEDICATION [Concomitant]
     Indication: MUSCLE SPASMS
     Route: 048
  6. TRAMADOL HYDROCHLORIDE AND ACETAMINOPHEN [Suspect]
     Route: 048
     Dates: start: 20111001

REACTIONS (2)
  - MUSCLE RIGIDITY [None]
  - OSTEONECROSIS [None]
